FAERS Safety Report 4660850-3 (Version None)
Quarter: 2005Q2

REPORT INFORMATION
  Report Type: 
  Country: None (occurrence: None)
  Receive Date: 20050425
  Receipt Date: 20050131
  Transmission Date: 20051028
  Serious: Yes (Other)
  Sender: FDA-Public Use
  Company Number: 16423

PATIENT
  Sex: Female
  Weight: 55.7924 kg

DRUGS (15)
  1. CARBOPLATIN [Suspect]
     Indication: BREAST CANCER
     Dosage: SEE DESCRIPTION
     Dates: start: 20040910
  2. TAXOTERE [Concomitant]
  3. ZOFRAN [Concomitant]
  4. DEXAMETHASONE [Concomitant]
  5. COMPAZINE [Concomitant]
  6. ATIVAN [Concomitant]
  7. OXYCONTIN [Concomitant]
  8. NEURONTIN [Concomitant]
  9. TYLENOL W/ CODEINE NO. 3 [Concomitant]
  10. OXYCODONE HCL [Concomitant]
  11. FEMARA [Concomitant]
  12. VITAMIN E [Concomitant]
  13. VIT C TAB [Concomitant]
  14. ARANEST [Concomitant]
  15. .. [Concomitant]

REACTIONS (1)
  - ABDOMINAL PAIN [None]
